FAERS Safety Report 10111125 (Version 2)
Quarter: 2014Q3

REPORT INFORMATION
  Report Type: Spontaneous
  Country: US (occurrence: None)
  Receive Date: 20140421
  Receipt Date: 20140722
  Transmission Date: 20150326
  Serious: No
  Sender: FDA-Public Use
  Company Number: AEGR000268

PATIENT
  Age: 58 Year
  Sex: Female
  Weight: 61.2 kg

DRUGS (9)
  1. JUXTAPID [Suspect]
     Active Substance: LOMITAPIDE MESYLATE
     Indication: TYPE IIA HYPERLIPIDAEMIA
     Route: 048
     Dates: start: 20130607, end: 2013
  2. VOLTAREN [Concomitant]
     Active Substance: DICLOFENAC SODIUM
  3. MICARDIS HCT [Concomitant]
     Active Substance: HYDROCHLOROTHIAZIDE\TELMISARTAN
  4. AMLODIPINE [Concomitant]
     Active Substance: AMLODIPINE BESYLATE
  5. CALCIUM (CALCIUM) [Concomitant]
     Active Substance: CALCIUM
  6. WELCHOL [Concomitant]
     Active Substance: COLESEVELAM HYDROCHLORIDE
  7. ASPIRIN. [Concomitant]
     Active Substance: ASPIRIN
  8. COREG [Concomitant]
     Active Substance: CARVEDILOL
  9. MULTIVITAMIN (VITAMINS NOS) [Concomitant]
     Active Substance: VITAMINS

REACTIONS (3)
  - Off label use [None]
  - Decreased appetite [None]
  - Abdominal pain upper [None]

NARRATIVE: CASE EVENT DATE: 2013
